FAERS Safety Report 8514725-X (Version None)
Quarter: 2012Q3

REPORT INFORMATION
  Report Type: 
  Country: None (occurrence: None)
  Receive Date: 20120717
  Receipt Date: 20120623
  Transmission Date: 20120928
  Serious: No
  Sender: FDA-Public Use
  Company Number: US-COVIDIEN/TYCO HEALTHCARE/MALLINCKRODT-T201202662

PATIENT
  Sex: Female

DRUGS (6)
  1. VITAMINS                           /90003601/ [Concomitant]
  2. MORPHINE [Suspect]
     Indication: BACK PAIN
     Dosage: EVERY 12 HOURS
  3. HYDROCODONE BITARTRATE + ACETAMINOPHEN [Concomitant]
     Indication: BREAKTHROUGH PAIN
     Dosage: 10/325, QID
  4. MORPHINE [Suspect]
     Indication: PAIN IN EXTREMITY
  5. MORPHINE SULFATE [Concomitant]
     Dosage: 30 MG, TID
  6. NEURONTIN [Concomitant]
     Indication: NEUROPATHY PERIPHERAL

REACTIONS (2)
  - PAIN [None]
  - WITHDRAWAL SYNDROME [None]
